FAERS Safety Report 6302310-X (Version None)
Quarter: 2009Q3

REPORT INFORMATION
  Report Type: 
  Country: None (occurrence: None)
  Receive Date: 20090810
  Receipt Date: 20090609
  Transmission Date: 20100115
  Serious: Yes (Other)
  Sender: FDA-Public Use
  Company Number: AT-PFIZER INC-2009251358

PATIENT
  Age: 59 Year

DRUGS (1)
  1. NICOTINE [Suspect]
     Dosage: UNK, INHALATION
     Dates: start: 20070901

REACTIONS (5)
  - CONDITION AGGRAVATED [None]
  - NAUSEA [None]
  - OESOPHAGEAL PAIN [None]
  - REFLUX OESOPHAGITIS [None]
  - THROAT IRRITATION [None]
